FAERS Safety Report 11893440 (Version 1)
Quarter: 2016Q1

REPORT INFORMATION
  Report Type: Spontaneous
  Country: US (occurrence: US)
  Receive Date: 20160106
  Receipt Date: 20160106
  Transmission Date: 20160526
  Serious: Yes (Hospitalization, Other)
  Sender: FDA-Public Use
  Company Number: US-ENDO PHARMACEUTICALS INC.-2015-005185

PATIENT
  Age: 42 Year
  Sex: Female
  Weight: 36.32 kg

DRUGS (4)
  1. ALPRAZOLAM TABLETS 0.5 MG [Suspect]
     Active Substance: ALPRAZOLAM
     Indication: SLEEP DISORDER
     Route: 048
     Dates: start: 20151203
  2. TEMAZEPAM CAPSULES [Suspect]
     Active Substance: TEMAZEPAM
     Indication: SLEEP DISORDER
  3. ALPRAZOLAM TABLETS 0.5 MG [Suspect]
     Active Substance: ALPRAZOLAM
     Indication: STRESS AT WORK
     Route: 048
     Dates: start: 20151023, end: 20151203
  4. TEMAZEPAM CAPSULES [Suspect]
     Active Substance: TEMAZEPAM
     Indication: STRESS AT WORK
     Route: 065
     Dates: start: 20151023

REACTIONS (23)
  - Feeling abnormal [Not Recovered/Not Resolved]
  - Dyspnoea [Not Recovered/Not Resolved]
  - Feeling cold [Not Recovered/Not Resolved]
  - Tremor [Not Recovered/Not Resolved]
  - Dizziness [Not Recovered/Not Resolved]
  - Mood altered [Not Recovered/Not Resolved]
  - Sleep disorder [Not Recovered/Not Resolved]
  - Memory impairment [Not Recovered/Not Resolved]
  - Disturbance in attention [Not Recovered/Not Resolved]
  - Vomiting [Not Recovered/Not Resolved]
  - Impaired work ability [Not Recovered/Not Resolved]
  - Dysarthria [Not Recovered/Not Resolved]
  - Coordination abnormal [Not Recovered/Not Resolved]
  - Suicidal ideation [Recovered/Resolved]
  - Loss of consciousness [Not Recovered/Not Resolved]
  - Reading disorder [Not Recovered/Not Resolved]
  - Caffeine consumption [Not Recovered/Not Resolved]
  - Crying [Not Recovered/Not Resolved]
  - Contusion [Not Recovered/Not Resolved]
  - Activities of daily living impaired [Not Recovered/Not Resolved]
  - Tobacco user [Not Recovered/Not Resolved]
  - Condition aggravated [Not Recovered/Not Resolved]
  - Somnolence [Not Recovered/Not Resolved]

NARRATIVE: CASE EVENT DATE: 20151024
